FAERS Safety Report 14505395 (Version 1)
Quarter: 2018Q1

REPORT INFORMATION
  Report Type: Spontaneous
  Country: US (occurrence: US)
  Receive Date: 20180208
  Receipt Date: 20180208
  Transmission Date: 20180509
  Serious: Yes (Other)
  Sender: FDA-Public Use
  Company Number: US-BAYER-2018-020951

PATIENT
  Age: 89 Year
  Sex: Female
  Weight: 49 kg

DRUGS (8)
  1. TYLENOL [Concomitant]
     Active Substance: ACETAMINOPHEN
     Dosage: UNK
  2. BAYER ASPIRIN [Suspect]
     Active Substance: ASPIRIN
     Indication: LYME DISEASE
     Dosage: 2 DF, QD
     Route: 048
  3. BAYER ASPIRIN 500 MG [Suspect]
     Active Substance: ASPIRIN
     Indication: FIBROMYALGIA
  4. BAYER ASPIRIN 500 MG [Suspect]
     Active Substance: ASPIRIN
     Indication: LYME DISEASE
     Dosage: 1 DF, UNK
     Route: 048
  5. METFORMIN [Concomitant]
     Active Substance: METFORMIN HYDROCHLORIDE
     Dosage: UNK
  6. TINEROL [Concomitant]
     Dosage: UNK
  7. BAYER ASPIRIN [Suspect]
     Active Substance: ASPIRIN
     Indication: FIBROMYALGIA
  8. CYMBALTA [Concomitant]
     Active Substance: DULOXETINE HYDROCHLORIDE
     Dosage: UNK

REACTIONS (2)
  - Product use in unapproved indication [Unknown]
  - Cerebrovascular accident [Unknown]

NARRATIVE: CASE EVENT DATE: 201801
